FAERS Safety Report 18569077 (Version 1)
Quarter: 2020Q4

REPORT INFORMATION
  Report Type: Spontaneous
  Country: US (occurrence: US)
  Receive Date: 20201130
  Receipt Date: 20201130
  Transmission Date: 20210114
  Serious: No
  Sender: FDA-Public Use
  Company Number: None

PATIENT
  Sex: Female

DRUGS (1)
  1. RASUVO [Suspect]
     Active Substance: METHOTREXATE SODIUM
     Indication: SENILE OSTEOPOROSIS
     Dosage: ?          OTHER ROUTE:UNDER THE SKIN?
     Route: 058
     Dates: start: 201509

REACTIONS (1)
  - Drug ineffective [None]
